FAERS Safety Report 10618648 (Version 16)
Quarter: 2017Q4

REPORT INFORMATION
  Report Type: Report from Study
  Country: BR (occurrence: BR)
  Receive Date: 20141202
  Receipt Date: 20171218
  Transmission Date: 20180320
  Serious: Yes (Hospitalization, Other)
  Sender: FDA-Public Use
  Company Number: PHHY2014BR156066

PATIENT
  Age: 46 Year
  Sex: Male
  Weight: 130 kg

DRUGS (22)
  1. DAFLON                             /01026201/ [Concomitant]
     Active Substance: DIOSMIN\HESPERIDIN
     Indication: VARICOSE VEIN
     Dosage: 500 UG, UNK
     Route: 048
  2. SANDOSTATIN LAR DEPOT [Suspect]
     Active Substance: OCTREOTIDE ACETATE
     Indication: ACROMEGALY
     Dosage: 30 MG, QMO, EVERY 28 DAYS
     Route: 030
     Dates: start: 2005
  3. SANDOSTATIN [Suspect]
     Active Substance: OCTREOTIDE ACETATE
     Indication: ACROMEGALY
     Dosage: UNK
     Route: 058
     Dates: start: 201412
  4. CORTISONE ACETATE. [Concomitant]
     Active Substance: CORTISONE ACETATE
     Indication: PRODUCT USED FOR UNKNOWN INDICATION
     Dosage: 10 MG, QD
     Route: 048
  5. OXYBUTYNIN. [Concomitant]
     Active Substance: OXYBUTYNIN CHLORIDE
     Indication: BLADDER DISORDER
     Dosage: 2 DF, QD
     Route: 048
  6. PREDNISONE. [Concomitant]
     Active Substance: PREDNISONE
     Indication: PRODUCT USED FOR UNKNOWN INDICATION
     Dosage: 2 DF, QD
     Route: 048
     Dates: start: 1984
  7. CALTRATE [Concomitant]
     Active Substance: CALCIUM CARBONATE
     Indication: CALCIUM DEFICIENCY
     Dosage: 1 DF, QD
     Route: 048
     Dates: start: 1984
  8. SANDOSTATIN LAR DEPOT [Suspect]
     Active Substance: OCTREOTIDE ACETATE
     Dosage: 20 MG, QMO EVERY 28 DAYS
     Route: 030
  9. TESTOSTERONE. [Concomitant]
     Active Substance: TESTOSTERONE
     Indication: ACROMEGALY
     Dosage: 1 DF, Q3MO
     Route: 030
  10. LEVOTHYROXINE. [Concomitant]
     Active Substance: LEVOTHYROXINE
     Indication: THYROID CANCER
     Dosage: 1 DF, QD
     Route: 048
  11. OMEPRAZOLE. [Concomitant]
     Active Substance: OMEPRAZOLE
     Indication: GASTRIC DISORDER
     Dosage: 2 DF, QD
     Route: 048
     Dates: start: 201411
  12. SANDOSTATIN LAR DEPOT [Suspect]
     Active Substance: OCTREOTIDE ACETATE
     Dosage: 30 MG, QMO
     Route: 030
  13. DIPYRONE [Concomitant]
     Active Substance: DIPYRONE
     Indication: PAIN
     Dosage: 40 DRP, QID
     Route: 048
  14. VENAFLON [Concomitant]
     Indication: VENOUS STENOSIS
     Dosage: 1 DF, QD
     Route: 065
  15. NEBILET [Concomitant]
     Active Substance: NEBIVOLOL
     Indication: DIASTOLIC DYSFUNCTION
     Dosage: 1 DF, QD
     Route: 048
  16. TAMARINE [Concomitant]
     Active Substance: HERBALS
     Indication: CONSTIPATION
     Dosage: 1 DF, QD
     Route: 048
     Dates: start: 201411
  17. PHENYTOIN. [Concomitant]
     Active Substance: PHENYTOIN
     Indication: SEIZURE
     Dosage: 3 DF, QD
     Route: 048
     Dates: start: 201411
  18. DAFLON                             /01026201/ [Concomitant]
     Active Substance: DIOSMIN\HESPERIDIN
     Dosage: 1000 UG, QD
     Route: 048
     Dates: start: 2009
  19. HIDANTAL [Concomitant]
     Active Substance: PHENYTOIN SODIUM
     Indication: SEIZURE
     Dosage: 3 DF, QD
     Route: 048
     Dates: start: 201411
  20. BETAISTINA [Concomitant]
     Indication: BALANCE DISORDER
     Dosage: 1 DF, QD
     Route: 048
  21. CALCIUM +D3 [Concomitant]
     Active Substance: CALCIUM\CHOLECALCIFEROL
     Indication: PRODUCT USED FOR UNKNOWN INDICATION
     Route: 048
  22. BETAHISTINE [Concomitant]
     Active Substance: BETAHISTINE
     Indication: BALANCE DISORDER
     Dosage: 1 DF, QD
     Route: 048
     Dates: start: 201501

REACTIONS (19)
  - Cerebrovascular accident [Unknown]
  - Malaise [Unknown]
  - Vomiting [Recovered/Resolved]
  - Diarrhoea [Recovered/Resolved]
  - Cerebral haemorrhage [Recovering/Resolving]
  - Pneumonia [Unknown]
  - Weight decreased [Unknown]
  - Depressed mood [Unknown]
  - Decreased appetite [Recovered/Resolved]
  - Hypertension [Recovering/Resolving]
  - Depression [Recovered/Resolved]
  - Aphasia [Recovering/Resolving]
  - Lymphoma [Unknown]
  - Lung disorder [Recovering/Resolving]
  - Cerebral haematoma [Recovering/Resolving]
  - Pneumonia aspiration [Recovered/Resolved]
  - Neoplasm malignant [Unknown]
  - Haemorrhagic stroke [Recovered/Resolved]
  - Urinary tract infection [Recovering/Resolving]

NARRATIVE: CASE EVENT DATE: 20141122
